FAERS Safety Report 5567720-7 (Version None)
Quarter: 2007Q4

REPORT INFORMATION
  Report Type: 
  Country: None (occurrence: None)
  Receive Date: 20071219
  Receipt Date: 20071213
  Transmission Date: 20080405
  Serious: Yes (Hospitalization)
  Sender: FDA-Public Use
  Company Number: JP-PFIZER INC-2007104991

PATIENT
  Age: 22 Year
  Sex: Female

DRUGS (3)
  1. SOLANAX [Suspect]
  2. HALCION [Suspect]
  3. DEPAS [Concomitant]

REACTIONS (1)
  - OVERDOSE [None]
